FAERS Safety Report 9713400 (Version 6)
Quarter: 2014Q4

REPORT INFORMATION
  Report Type: Report from Study
  Country: FR (occurrence: FR)
  Receive Date: 20131126
  Receipt Date: 20141119
  Transmission Date: 20150529
  Serious: Yes (Hospitalization)
  Sender: FDA-Public Use
  Company Number: FR-SA-2013SA119158

PATIENT
  Age: 66 Year
  Sex: Female

DRUGS (14)
  1. MEDROL [Suspect]
     Active Substance: METHYLPREDNISOLONE
     Indication: PROPHYLAXIS
     Route: 065
     Dates: start: 20131029, end: 20131031
  2. TRASTUZUMAB [Suspect]
     Active Substance: TRASTUZUMAB
     Indication: HER-2 POSITIVE BREAST CANCER
     Dosage: 6 MG/KG,MAINTENANCE DOSE AS PER PROTOC
     Route: 042
  3. JANUVIA [Concomitant]
     Active Substance: SITAGLIPTIN PHOSPHATE
  4. NIVESTIM [Concomitant]
     Active Substance: FILGRASTIM
     Indication: PROPHYLAXIS
     Dates: start: 20131103, end: 20131107
  5. PERTUZUMAB [Suspect]
     Active Substance: PERTUZUMAB
     Indication: HER-2 POSITIVE BREAST CANCER
     Dosage: FORM:INFUSION SOLUTION
     Route: 042
  6. DAFALGAN CODEINE [Concomitant]
     Active Substance: ACETAMINOPHEN\CODEINE PHOSPHATE
  7. SPIRONOLACTONE. [Concomitant]
     Active Substance: SPIRONOLACTONE
  8. KARDEGIC [Concomitant]
     Active Substance: ASPIRIN LYSINE
     Dates: end: 20131021
  9. LANTUS [Concomitant]
     Active Substance: INSULIN GLARGINE
     Dates: start: 20130330, end: 20131030
  10. DOCETAXEL. [Suspect]
     Active Substance: DOCETAXEL
     Indication: HER-2 POSITIVE BREAST CANCER
     Route: 042
     Dates: start: 20131031
  11. PERTUZUMAB [Suspect]
     Active Substance: PERTUZUMAB
     Indication: HER-2 POSITIVE BREAST CANCER
     Dosage: FORM:INFUSION SOLUTION
     Route: 042
     Dates: start: 20131030, end: 20131030
  12. FENOFIBRATE. [Concomitant]
     Active Substance: FENOFIBRATE
  13. TRASTUZUMAB [Suspect]
     Active Substance: TRASTUZUMAB
     Indication: HER-2 POSITIVE BREAST CANCER
     Dosage: FORM: INFUSION SOLUTION, LOADING DOSE AS PER PROTOCOL?330 MG LOADING DOSE
     Route: 042
     Dates: start: 20131030, end: 20131030
  14. DIAMICRON [Concomitant]
     Active Substance: GLICLAZIDE
     Dates: start: 20130329, end: 20131017

REACTIONS (3)
  - General physical health deterioration [Recovered/Resolved]
  - Hyperglycaemia [Recovered/Resolved]
  - Febrile neutropenia [Recovered/Resolved]

NARRATIVE: CASE EVENT DATE: 20131030
